FAERS Safety Report 6032483-8 (Version None)
Quarter: 2008Q4

REPORT INFORMATION
  Report Type: 
  Country: None (occurrence: None)
  Receive Date: 20081224
  Receipt Date: 20080924
  Transmission Date: 20090506
  Serious: No
  Sender: FDA-Public Use
  Company Number: 2008PV036776

PATIENT
  Age: 36 Year
  Sex: Male

DRUGS (1)
  1. SYMLIN [Suspect]
     Indication: TYPE 1 DIABETES MELLITUS
     Dosage: 60 MCG; ;SC; 15 MCG; ;SC
     Route: 058
     Dates: end: 20080101

REACTIONS (3)
  - DEPRESSION [None]
  - HYPOGLYCAEMIA [None]
  - PERSONALITY CHANGE [None]
